FAERS Safety Report 24608631 (Version 1)
Quarter: 2024Q4

REPORT INFORMATION
  Report Type: Spontaneous
  Country: US (occurrence: None)
  Receive Date: 20241112
  Receipt Date: 20241112
  Transmission Date: 20250115
  Serious: Yes (Other)
  Sender: Public
  Company Number: None

PATIENT
  Sex: Female
  Weight: 76.5 kg

DRUGS (17)
  1. OZEMPIC [Suspect]
     Active Substance: SEMAGLUTIDE
     Indication: Weight
  2. BETHANECHOL [Concomitant]
     Active Substance: BETHANECHOL
  3. ESOMEPRAZOLE [Concomitant]
     Active Substance: ESOMEPRAZOLE
  4. FUROSEMIDE [Concomitant]
     Active Substance: FUROSEMIDE
  5. Isosorbide Mononit ER [Concomitant]
  6. LEVOTHYROXINE [Concomitant]
     Active Substance: LEVOTHYROXINE
  7. POTASSIUM [Concomitant]
     Active Substance: POTASSIUM
  8. ROSUVASTATIN [Concomitant]
     Active Substance: ROSUVASTATIN
  9. TAMSULOSIN [Concomitant]
     Active Substance: TAMSULOSIN
  10. MORPHINE [Concomitant]
     Active Substance: MORPHINE
  11. MORPHINE [Concomitant]
     Active Substance: MORPHINE
  12. PROMETHAZINE [Concomitant]
     Active Substance: PROMETHAZINE HYDROCHLORIDE
  13. B12 [Concomitant]
  14. MINERALS\VITAMINS [Concomitant]
     Active Substance: MINERALS\VITAMINS
  15. VITAMIN D [Concomitant]
     Active Substance: VITAMIN D NOS
  16. OMEGA 3 [Concomitant]
     Active Substance: CAPSAICIN
  17. MUCINEX [Concomitant]
     Active Substance: GUAIFENESIN

REACTIONS (6)
  - Constipation [None]
  - Dyspnoea [None]
  - Dysphonia [None]
  - Malaise [None]
  - Hypertension [None]
  - Chest pain [None]
